FAERS Safety Report 5646004-2 (Version None)
Quarter: 2008Q1

REPORT INFORMATION
  Report Type: 
  Country: None (occurrence: None)
  Receive Date: 20080229
  Receipt Date: 20080220
  Transmission Date: 20080703
  Serious: Yes (Hospitalization, Other)
  Sender: FDA-Public Use
  Company Number: US-PFIZER INC-2008015595

PATIENT
  Sex: Male

DRUGS (2)
  1. CELEBREX [Suspect]
     Indication: OSTEOARTHRITIS
     Dates: start: 20000715, end: 20000901
  2. VIOXX [Concomitant]
     Indication: OSTEOARTHRITIS
     Dates: start: 20001023, end: 20020131

REACTIONS (2)
  - MENTAL DISORDER [None]
  - MYOCARDIAL INFARCTION [None]
